FAERS Safety Report 4693018-5 (Version None)
Quarter: 2005Q2

REPORT INFORMATION
  Report Type: 
  Country: None (occurrence: None)
  Receive Date: 20050615
  Receipt Date: 20050605
  Transmission Date: 20051028
  Serious: Yes (Other)
  Sender: FDA-Public Use
  Company Number: 200512360BCC

PATIENT
  Age: 72 Year
  Sex: Male
  Weight: 54.4316 kg

DRUGS (9)
  1. ALEVE [Suspect]
     Dosage: 220 MG TOTAL DAILY ORAL
     Route: 048
     Dates: start: 20050604
  2. ALBUTEROL [Concomitant]
  3. FLOVENT [Concomitant]
  4. DIGITOX [Concomitant]
  5. VERAPAMIL [Concomitant]
  6. FUROSEMIDE [Concomitant]
  7. POTASSIUM CHLORIDE [Concomitant]
  8. ASPIRIN [Concomitant]
  9. QUINAPRIL [Concomitant]

REACTIONS (1)
  - OXYGEN SATURATION DECREASED [None]
